FAERS Safety Report 16805852 (Version 1)
Quarter: 2019Q3

REPORT INFORMATION
  Report Type: Report from Study
  Country: TW (occurrence: TW)
  Receive Date: 20190913
  Receipt Date: 20190913
  Transmission Date: 20191005
  Serious: Yes (Other)
  Sender: FDA-Public Use
  Company Number: PHHY2019TW212645

PATIENT

DRUGS (29)
  1. TASIGNA [Suspect]
     Active Substance: NILOTINIB
     Indication: CHRONIC MYELOID LEUKAEMIA
     Dosage: 600 OT, UNK
     Route: 048
     Dates: start: 20151127
  2. BISOPROLOL [Concomitant]
     Active Substance: BISOPROLOL
     Dosage: 1.25 MG, UNK
     Route: 048
     Dates: start: 20170621, end: 20170721
  3. MOMETASONE [Concomitant]
     Active Substance: MOMETASONE
     Indication: RHINITIS ALLERGIC
     Dosage: 1 DF, UNK
     Route: 045
     Dates: start: 20171221, end: 20180108
  4. LEVOCETIRIZINE [Concomitant]
     Active Substance: LEVOCETIRIZINE
     Indication: RHINITIS ALLERGIC
     Dosage: 5 MG, UNK
     Route: 048
     Dates: start: 20180419, end: 20180607
  5. ROSUVASTATIN. [Concomitant]
     Active Substance: ROSUVASTATIN
     Dosage: 10 MG, UNK
     Route: 048
     Dates: start: 20170927, end: 20171027
  6. ROSUVASTATIN. [Concomitant]
     Active Substance: ROSUVASTATIN
     Dosage: 10 MG, UNK
     Route: 048
     Dates: start: 20170621, end: 20170721
  7. BISOPROLOL [Concomitant]
     Active Substance: BISOPROLOL
     Dosage: 1.25 MG, UNK
     Route: 048
     Dates: start: 20171225, end: 20180124
  8. BISOPROLOL [Concomitant]
     Active Substance: BISOPROLOL
     Dosage: 1.25 MG, UNK
     Route: 048
     Dates: start: 20170927, end: 20171027
  9. FUSIDIC ACID [Concomitant]
     Active Substance: FUSIDIC ACID
     Indication: FIBROCYSTIC BREAST DISEASE
     Dosage: 5 G, UNK
     Route: 065
     Dates: start: 20180430, end: 20180510
  10. PREDNISOLONE. [Concomitant]
     Active Substance: PREDNISOLONE
     Indication: RHINITIS ALLERGIC
     Dosage: 5 MG, UNK
     Route: 048
     Dates: start: 20180808, end: 20180815
  11. ROSUVASTATIN. [Concomitant]
     Active Substance: ROSUVASTATIN
     Dosage: 10 MG, UNK
     Route: 048
     Dates: start: 20171225, end: 20180124
  12. ACTIFED [Concomitant]
     Indication: RHINITIS ALLERGIC
     Dosage: 1 DF, UNK
     Route: 048
     Dates: start: 20170213, end: 20170223
  13. BISOPROLOL [Concomitant]
     Active Substance: BISOPROLOL
     Dosage: 1.25 MG, UNK
     Route: 048
     Dates: start: 20161116, end: 20161217
  14. ROSUVASTATIN. [Concomitant]
     Active Substance: ROSUVASTATIN
     Dosage: 10 MG, UNK
     Route: 048
     Dates: start: 20161116, end: 20161217
  15. THIAMINE. [Concomitant]
     Active Substance: THIAMINE
     Indication: PROPHYLAXIS
     Dosage: 1 DF, UNK
     Route: 048
     Dates: start: 20170316, end: 20170610
  16. ACTIFED [Concomitant]
     Dosage: 1 DF, UNK
     Route: 048
     Dates: start: 20161116, end: 20161121
  17. BROEN C [Concomitant]
     Indication: RHINITIS ALLERGIC
     Dosage: 1 DF, UNK
     Route: 048
     Dates: start: 20171214, end: 20171221
  18. ROSUVASTATIN. [Concomitant]
     Active Substance: ROSUVASTATIN
     Indication: RHINITIS ALLERGIC
     Dosage: 10 MG, UNK
     Route: 048
     Dates: start: 20180319, end: 20181007
  19. ROSUVASTATIN. [Concomitant]
     Active Substance: ROSUVASTATIN
     Dosage: 10 MG, UNK
     Route: 048
     Dates: start: 20170308, end: 20170408
  20. ACTIFED [Concomitant]
     Dosage: UNK
     Route: 048
     Dates: start: 20180419, end: 20180607
  21. BISOPROLOL [Concomitant]
     Active Substance: BISOPROLOL
     Indication: RHINITIS ALLERGIC
     Dosage: 1.25 MG, UNK
     Route: 048
     Dates: start: 20170308, end: 20170408
  22. DAILYCARE ACTIBEST [Concomitant]
     Indication: PROPHYLAXIS
     Dosage: 1 DF, UNK
     Route: 048
     Dates: start: 20170412
  23. FLUTICASONE. [Concomitant]
     Active Substance: FLUTICASONE
     Indication: RHINITIS ALLERGIC
     Dosage: UNK
     Route: 055
     Dates: start: 20161116, end: 20161217
  24. ACTIFED [Concomitant]
     Dosage: 1 DF, UNK
     Route: 048
     Dates: start: 20161222, end: 20170119
  25. BISOPROLOL [Concomitant]
     Active Substance: BISOPROLOL
     Dosage: 1.25 MG, UNK
     Route: 048
     Dates: start: 20180319, end: 20181007
  26. HIROS [Concomitant]
     Indication: RHINITIS ALLERGIC
     Dosage: UNK
     Route: 048
     Dates: start: 20180829
  27. LEVOCETIRIZINE [Concomitant]
     Active Substance: LEVOCETIRIZINE
     Indication: RHINITIS ALLERGIC
     Dosage: 5 MG, UNK
     Route: 048
     Dates: start: 20161116, end: 20161217
  28. PIPRINHYDRINATE [Concomitant]
     Indication: RHINITIS ALLERGIC
     Dosage: 3 MG, UNK
     Route: 048
     Dates: start: 20171221, end: 20180104
  29. TOPSYM [Concomitant]
     Indication: RHINITIS ALLERGIC
     Dosage: 10 MG, UNK
     Route: 065
     Dates: start: 20180419, end: 20180607

REACTIONS (2)
  - Ocular discomfort [Recovered/Resolved]
  - Dry eye [Recovering/Resolving]

NARRATIVE: CASE EVENT DATE: 20170525
